FAERS Safety Report 18867530 (Version 3)
Quarter: 2021Q2

REPORT INFORMATION
  Report Type: Report from Study
  Country: US (occurrence: US)
  Receive Date: 20210209
  Receipt Date: 20210611
  Transmission Date: 20210717
  Serious: Yes (Hospitalization)
  Sender: FDA-Public Use
  Company Number: US-INSMED, INC.-US-INS-20-01659

PATIENT
  Age: 52 Year
  Sex: Female

DRUGS (4)
  1. ARIKAYCE [Suspect]
     Active Substance: AMIKACIN
     Dosage: 590 MILLIGRAM, QD
     Route: 055
     Dates: start: 2020, end: 2020
  2. ARIKAYCE [Suspect]
     Active Substance: AMIKACIN
     Dosage: 590 MILLIGRAM, QD
     Route: 055
     Dates: start: 2020, end: 2020
  3. ARIKAYCE [Suspect]
     Active Substance: AMIKACIN
     Dosage: 590 MILLIGRAM, QD
     Route: 055
  4. ARIKAYCE [Suspect]
     Active Substance: AMIKACIN
     Indication: MYCOBACTERIUM AVIUM COMPLEX INFECTION
     Dosage: 590 MILLIGRAM, QD
     Route: 055
     Dates: start: 20200826, end: 2020

REACTIONS (9)
  - Headache [Unknown]
  - Dysphonia [Unknown]
  - Therapy interrupted [Unknown]
  - Pneumonia [Unknown]
  - Dysgeusia [Not Recovered/Not Resolved]
  - Hospitalisation [Unknown]
  - Cough [Unknown]
  - Chest injury [Unknown]
  - Intentional dose omission [Unknown]

NARRATIVE: CASE EVENT DATE: 2020
